FAERS Safety Report 15796973 (Version 1)
Quarter: 2019Q1

REPORT INFORMATION
  Report Type: Spontaneous
  Country: US (occurrence: US)
  Receive Date: 20190107
  Receipt Date: 20190107
  Transmission Date: 20190417
  Serious: Yes (Death)
  Sender: FDA-Public Use
  Company Number: None

PATIENT
  Age: 71 Year
  Sex: Male
  Weight: 64.9 kg

DRUGS (1)
  1. OMNIPAQUE [Suspect]
     Active Substance: IOHEXOL
     Indication: COMPUTERISED TOMOGRAM
     Route: 042
     Dates: start: 20181225, end: 20181225

REACTIONS (4)
  - Infusion related reaction [None]
  - Pulmonary oedema [None]
  - Cardio-respiratory arrest [None]
  - Respiratory distress [None]

NARRATIVE: CASE EVENT DATE: 20181225
